FAERS Safety Report 6495635-9 (Version None)
Quarter: 2009Q4

REPORT INFORMATION
  Report Type: 
  Country: None (occurrence: None)
  Receive Date: 20091214
  Receipt Date: 20090727
  Transmission Date: 20100525
  Serious: No
  Sender: FDA-Public Use
  Company Number: US-BRISTOL-MYERS SQUIBB COMPANY-14716914

PATIENT
  Age: 52 Year
  Sex: Female
  Weight: 88 kg

DRUGS (6)
  1. ABILIFY [Suspect]
     Indication: BIPOLAR DISORDER
     Route: 048
     Dates: start: 20070701
  2. METHOCARBAMOL [Concomitant]
  3. LEVOTHYROXINE SODIUM [Concomitant]
  4. NAPROXEN [Concomitant]
  5. MULTI-VITAMIN [Concomitant]
  6. FISH OIL [Concomitant]

REACTIONS (1)
  - OEDEMA PERIPHERAL [None]
